FAERS Safety Report 7596981-8 (Version None)
Quarter: 2011Q3

REPORT INFORMATION
  Report Type: 
  Country: None (occurrence: None)
  Receive Date: 20110708
  Receipt Date: 20110630
  Transmission Date: 20111222
  Serious: Yes (Hospitalization)
  Sender: FDA-Public Use
  Company Number: AU-BRISTOL-MYERS SQUIBB COMPANY-15870124

PATIENT
  Age: 64 Year
  Sex: Female

DRUGS (2)
  1. ERBITUX [Suspect]
     Indication: COLORECTAL CANCER METASTATIC
     Dates: start: 20110421
  2. IRINOTECAN HYDROCHLORIDE [Concomitant]
     Indication: COLORECTAL CANCER METASTATIC

REACTIONS (5)
  - ANAL STENOSIS [None]
  - CONSTIPATION [None]
  - ANAL FISSURE [None]
  - PROCTALGIA [None]
  - RASH [None]
